FAERS Safety Report 22085255 (Version 1)
Quarter: 2023Q1

REPORT INFORMATION
  Report Type: Spontaneous
  Country: US (occurrence: None)
  Receive Date: 20230309
  Receipt Date: 20230309
  Transmission Date: 20230417
  Serious: Yes (Hospitalization)
  Sender: FDA-Public Use
  Company Number: None

PATIENT
  Age: 79 Year
  Sex: Female

DRUGS (1)
  1. PROLIA [Suspect]
     Active Substance: DENOSUMAB
     Indication: Osteoporosis
     Dosage: 60MG OTHER SUBCUTANEOUS
     Route: 058
     Dates: start: 202208

REACTIONS (3)
  - Fall [None]
  - Pelvic fracture [None]
  - Therapy interrupted [None]

NARRATIVE: CASE EVENT DATE: 20230227
